FAERS Safety Report 6727809-3 (Version None)
Quarter: 2010Q2

REPORT INFORMATION
  Report Type: 
  Country: None (occurrence: None)
  Receive Date: 20100514
  Receipt Date: 20100514
  Transmission Date: 20101027
  Serious: Yes (Other)
  Sender: FDA-Public Use
  Company Number: None

PATIENT
  Sex: Female

DRUGS (1)
  1. OMEPRAZOLE [Suspect]
     Dosage: TAKE 1 CAPSULE DAILY

REACTIONS (3)
  - DRUG INEFFECTIVE [None]
  - DYSPEPSIA [None]
  - GASTROOESOPHAGEAL REFLUX DISEASE [None]
